FAERS Safety Report 23530145 (Version 3)
Quarter: 2024Q2

REPORT INFORMATION
  Report Type: Spontaneous
  Country: BR (occurrence: BR)
  Receive Date: 20240216
  Receipt Date: 20240429
  Transmission Date: 20240715
  Serious: Yes (Other)
  Sender: FDA-Public Use
  Company Number: BR-BoehringerIngelheim-2024-BI-007772

PATIENT
  Age: 75 Year
  Sex: Male
  Weight: 65 kg

DRUGS (12)
  1. SPIRIVA [Suspect]
     Active Substance: TIOTROPIUM BROMIDE MONOHYDRATE
     Indication: Chronic obstructive pulmonary disease
     Dosage: FORM OF ADMIN: SPRAY INHALATION.??2 CONSECUTIVE PUFFS PER DAY
     Route: 048
     Dates: start: 20240104, end: 20240209
  2. SPIRIVA [Suspect]
     Active Substance: TIOTROPIUM BROMIDE MONOHYDRATE
     Dosage: FORM OF ADMIN: SPRAY INHALATION.?3 PUFFS IN THE MORNING, ONLY FOR 2 DAYS.
  3. METFORMIN HYDROCHLORIDE [Suspect]
     Active Substance: METFORMIN HYDROCHLORIDE
     Indication: Diabetes mellitus
     Dosage: 3 TABLETS A DAY, 500 MG EACH (1 IN THE MORNING, ANOTHER AT LUNCH AND ANOTHER AT DINNER)
     Route: 048
  4. METFORMIN HYDROCHLORIDE [Suspect]
     Active Substance: METFORMIN HYDROCHLORIDE
     Dosage: THE PATIENT USED TO USE THE 850 MG VERSION.
  5. INSULIN HUMAN [Concomitant]
     Active Substance: INSULIN HUMAN
     Indication: Diabetes mellitus
     Dosage: 22 UNITS IN THE MORNING AND 8 UNITS AT LUNCH.
  6. XARELTO [Concomitant]
     Active Substance: RIVAROXABAN
     Indication: Anticoagulant therapy
     Route: 048
  7. METOPROLOL SUCCINATE [Concomitant]
     Active Substance: METOPROLOL SUCCINATE
     Indication: Hypertension
     Route: 048
  8. FUROSEMIDE [Concomitant]
     Active Substance: FUROSEMIDE
     Indication: Hypertension
     Route: 048
  9. ROSUVASTATIN [Concomitant]
     Active Substance: ROSUVASTATIN
     Indication: Blood cholesterol increased
     Route: 048
  10. MALEATO DE ENALAPRIL [Concomitant]
     Indication: Hypertension
     Route: 048
  11. MONOCORDIL [Concomitant]
     Active Substance: ISOSORBIDE MONONITRATE
     Indication: Hypertension
     Route: 048
  12. ASPIRIN [Concomitant]
     Active Substance: ASPIRIN
     Indication: Drug therapy
     Route: 065

REACTIONS (13)
  - Apnoea [Recovered/Resolved]
  - Dyspnoea [Recovered/Resolved]
  - Cough [Recovered/Resolved]
  - Syncope [Recovered/Resolved]
  - Syncope [Recovered/Resolved]
  - Loss of consciousness [Recovered/Resolved]
  - Eye movement disorder [Recovered/Resolved]
  - Syncope [Recovered/Resolved]
  - Blood creatinine increased [Unknown]
  - Blood glucose fluctuation [Unknown]
  - Loss of consciousness [Recovered/Resolved]
  - Sensory processing sensitivity [Recovered/Resolved]
  - Overdose [Recovered/Resolved]

NARRATIVE: CASE EVENT DATE: 20240104
